FAERS Safety Report 5565926-4 (Version None)
Quarter: 2007Q4

REPORT INFORMATION
  Report Type: 
  Country: None (occurrence: None)
  Receive Date: 20071213
  Receipt Date: 20071128
  Transmission Date: 20080405
  Serious: Yes (Other)
  Sender: FDA-Public Use
  Company Number: 164712ISR

PATIENT
  Age: 49 Year
  Sex: Male

DRUGS (2)
  1. TRAMADOL HCL [Suspect]
     Indication: HUMERUS FRACTURE
     Dosage: (100 MG) ORAL
     Route: 048
  2. MORPHINE [Suspect]
     Dosage: (30 MG)

REACTIONS (3)
  - ERYTHEMA [None]
  - GRAND MAL CONVULSION [None]
  - SEROTONIN SYNDROME [None]
